FAERS Safety Report 13449316 (Version 5)
Quarter: 2017Q2

REPORT INFORMATION
  Report Type: Report from Study
  Country: US (occurrence: US)
  Receive Date: 20170417
  Receipt Date: 20170608
  Transmission Date: 20170830
  Serious: Yes (Other)
  Sender: FDA-Public Use
  Company Number: PHEH2017US011122

PATIENT
  Age: 60 Year
  Sex: Male
  Weight: 86.17 kg

DRUGS (1)
  1. GILENYA [Suspect]
     Active Substance: FINGOLIMOD HYDROCHLORIDE
     Indication: MULTIPLE SCLEROSIS
     Dosage: 0.5 MG, QD
     Route: 048
     Dates: start: 20170330, end: 20170424

REACTIONS (7)
  - Heart rate irregular [Recovering/Resolving]
  - Myocardial infarction [Unknown]
  - Tachycardia [Unknown]
  - Maximum heart rate decreased [Unknown]
  - Sinus bradycardia [Unknown]
  - Ventricular extrasystoles [Not Recovered/Not Resolved]
  - Cardiac disorder [Unknown]

NARRATIVE: CASE EVENT DATE: 20170330
